FAERS Safety Report 4457988-2 (Version None)
Quarter: 2004Q3

REPORT INFORMATION
  Report Type: 
  Country: None (occurrence: None)
  Receive Date: 20040917
  Receipt Date: 20040420
  Transmission Date: 20050211
  Serious: Yes (Other)
  Sender: FDA-Public Use
  Company Number: US-JNJFOC-20040404478

PATIENT
  Age: 15 Year
  Sex: Female

DRUGS (1)
  1. TOPAMAX [Suspect]
     Indication: MIGRAINE
     Dosage: 10 MG, IN 1 DAY, ORAL
     Route: 048

REACTIONS (2)
  - MUSCLE SPASMS [None]
  - OVERDOSE [None]
